FAERS Safety Report 9257004 (Version 1)
Quarter: 2013Q2

REPORT INFORMATION
  Report Type: Spontaneous
  Country: BR (occurrence: BR)
  Receive Date: 20130426
  Receipt Date: 20130426
  Transmission Date: 20140414
  Serious: Yes (Hospitalization)
  Sender: FDA-Public Use
  Company Number: BR-ELI_LILLY_AND_COMPANY-BR201304004914

PATIENT
  Age: 61 Year
  Sex: Female
  Weight: 52 kg

DRUGS (10)
  1. HUMALOG LISPRO [Suspect]
     Indication: DIABETES MELLITUS
     Dosage: 6 IU, EACH MORNING
     Route: 058
  2. HUMALOG LISPRO [Suspect]
     Dosage: 6 IU, QD
     Route: 058
  3. HUMALOG LISPRO [Suspect]
     Dosage: 4 IU, EACH EVENING
     Route: 058
  4. HUMALOG LISPRO [Suspect]
     Dosage: 2 IU, EACH MORNING
     Route: 058
  5. HUMALOG LISPRO [Suspect]
     Dosage: 4 IU, QD
     Route: 058
  6. HUMALOG LISPRO [Suspect]
     Dosage: 3 IU, EACH EVENING
     Route: 058
  7. HUMALOG LISPRO [Suspect]
     Dosage: 3 IU, EACH MORNING
     Route: 058
  8. HUMALOG LISPRO [Suspect]
     Dosage: 6 IU, QD
     Route: 058
  9. HUMALOG LISPRO [Suspect]
     Dosage: 4 IU, EACH EVENING
     Route: 058
  10. LANTUS [Concomitant]
     Dosage: UNK, UNKNOWN

REACTIONS (4)
  - Feeling abnormal [Unknown]
  - Fall [Unknown]
  - Head injury [Unknown]
  - Hypoglycaemia [Unknown]
